FAERS Safety Report 13675227 (Version 1)
Quarter: 2017Q2

REPORT INFORMATION
  Report Type: Spontaneous
  Country: US (occurrence: US)
  Receive Date: 20170621
  Receipt Date: 20170621
  Transmission Date: 20170830
  Serious: No
  Sender: FDA-Public Use
  Company Number: US-ACTELION-A-NJ2016-142638

PATIENT
  Age: 65 Year
  Sex: Male
  Weight: 58.96 kg

DRUGS (3)
  1. VELETRI [Suspect]
     Active Substance: EPOPROSTENOL
     Indication: PULMONARY ARTERIAL HYPERTENSION
     Dosage: 42 NG/KG, PER MIN
     Route: 042
     Dates: start: 20120711
  2. COUMADIN [Concomitant]
     Active Substance: WARFARIN SODIUM
  3. VELETRI [Suspect]
     Active Substance: EPOPROSTENOL
     Dosage: 43 NG/KG, PER MIN
     Route: 042

REACTIONS (14)
  - Dizziness [Unknown]
  - Device alarm issue [Unknown]
  - Pallor [Unknown]
  - Headache [Unknown]
  - Catheter site haemorrhage [Unknown]
  - Device occlusion [Unknown]
  - Device connection issue [Unknown]
  - Dyspnoea [Unknown]
  - Erythema [Unknown]
  - Malaise [Unknown]
  - Device leakage [Unknown]
  - Nausea [Unknown]
  - Rash generalised [Unknown]
  - Drug dose omission [Unknown]

NARRATIVE: CASE EVENT DATE: 20170601
